APPROVED DRUG PRODUCT: FLUCYTOSINE
Active Ingredient: FLUCYTOSINE
Strength: 500MG
Dosage Form/Route: CAPSULE;ORAL
Application: A201566 | Product #002 | TE Code: AB
Applicant: SIGMAPHARM LABORATORIES LLC
Approved: Jun 28, 2011 | RLD: No | RS: No | Type: RX